FAERS Safety Report 7137845-3 (Version None)
Quarter: 2010Q4

REPORT INFORMATION
  Report Type: 
  Country: None (occurrence: None)
  Receive Date: 20101206
  Receipt Date: 20101201
  Transmission Date: 20110411
  Serious: Yes (Hospitalization)
  Sender: FDA-Public Use
  Company Number: US-ALEXION-A201001305

PATIENT
  Sex: Male

DRUGS (8)
  1. SOLIRIS [Suspect]
     Indication: PAROXYSMAL NOCTURNAL HAEMOGLOBINURIA
     Dosage: 600 MG, QWX4
     Route: 042
     Dates: start: 20091029, end: 20090101
  2. SOLIRIS [Suspect]
     Dosage: 900 MG, Q2W
     Route: 042
     Dates: start: 20091209
  3. CYCLOSPORINE [Concomitant]
     Indication: APLASTIC ANAEMIA
     Dosage: 150 MG, BID
     Route: 048
  4. NEUPOGEN [Concomitant]
     Indication: NEUTROPENIA
     Dosage: 300 MG, QD
  5. PROCRIT                            /00909301/ [Concomitant]
     Indication: NEUTROPENIA
     Dosage: 40,000 UNITS, QW
  6. PERCOCET [Concomitant]
     Dosage: 2 Q4H, PRN
  7. OXYCONTIN [Concomitant]
     Dosage: 120 MG, BID
  8. EXJADE [Concomitant]
     Indication: IRON OVERLOAD
     Dosage: 125 MG, QD
     Route: 048

REACTIONS (7)
  - ANAEMIA [None]
  - DRUG DOSE OMISSION [None]
  - NAUSEA [None]
  - OROPHARYNGEAL CANDIDIASIS [None]
  - PHARYNGITIS [None]
  - STAPHYLOCOCCAL INFECTION [None]
  - VOMITING [None]
